FAERS Safety Report 8062579-0 (Version None)
Quarter: 2012Q1

REPORT INFORMATION
  Report Type: 
  Country: None (occurrence: None)
  Receive Date: 20120118
  Receipt Date: 20120104
  Transmission Date: 20120608
  Serious: Yes (Other)
  Sender: FDA-Public Use
  Company Number: AUR-APL-2012-00201

PATIENT
  Age: 74 Year
  Sex: Female
  Weight: 49.8957 kg

DRUGS (7)
  1. ISOSORBIDE (ISOSORBIDE) [Concomitant]
  2. PLAVIX (CLOPIDOGREL) [10057097 - DRUG USE FOR UNKNOWN INDICATION] [V.1 [Concomitant]
  3. SIMVASTATIN (SIMVASTATIN) [10057097 - DRUG USE FOR UNKNOWN INDICATION] [Concomitant]
  4. DILANTIN [Concomitant]
  5. PHENOBARBITAL (PHENOBARBITAL) [10057097 - DRUG USE FOR UNKNOWN INDICAT [Concomitant]
  6. DILTIAZEM (DILTIAZEM) [10057097 - DRUG USE FOR UNKNOWN INDICATION] [V. [Concomitant]
  7. ALENDRONIC ACID (ALENDRONIC ACID) [Suspect]
     Indication: OSTEOPOROSIS
     Dosage: 70 MG, 1 WK, ORAL
     Route: 048
     Dates: start: 20110901, end: 20111226

REACTIONS (5)
  - ARTHRALGIA [None]
  - OEDEMA PERIPHERAL [None]
  - SENSATION OF HEAVINESS [None]
  - MYALGIA [None]
  - BONE PAIN [None]
